FAERS Safety Report 7342508-5 (Version None)
Quarter: 2011Q1

REPORT INFORMATION
  Report Type: 
  Country: None (occurrence: None)
  Receive Date: 20110310
  Receipt Date: 20110307
  Transmission Date: 20110831
  Serious: No
  Sender: FDA-Public Use
  Company Number: US-PFIZER INC-2011043818

PATIENT
  Sex: Female
  Weight: 46.712 kg

DRUGS (3)
  1. TARCEVA [Concomitant]
     Indication: LUNG NEOPLASM MALIGNANT
     Dosage: UNK
  2. LYRICA [Suspect]
     Indication: PRURITUS
     Dosage: 75 MG, 1X/DAY
     Route: 048
     Dates: start: 20110216, end: 20110217
  3. IRON [Concomitant]
     Dosage: UNK

REACTIONS (2)
  - SEDATION [None]
  - COORDINATION ABNORMAL [None]
